FAERS Safety Report 7878374 (Version 6)
Quarter: 2012Q4

REPORT INFORMATION
  Report Type: 
  Country: US (occurrence: US)
  Receive Date: 20110330
  Receipt Date: 20121217
  Transmission Date: 20130627
  Serious: Yes (Hospitalization, Other)
  Sender: FDA-Public Use
  Company Number: US-ASTRAZENECA-2011SE16043

PATIENT
  Age: 82 Year
  Sex: Female
  Weight: 49 kg

DRUGS (3)
  1. CRESTOR [Suspect]
     Indication: BLOOD CHOLESTEROL INCREASED
     Route: 048
     Dates: start: 2005
  2. PLAVIX [Concomitant]
     Indication: CEREBROVASCULAR ACCIDENT PROPHYLAXIS
     Route: 048
     Dates: start: 2005
  3. CLONIDINA HCL [Concomitant]
     Indication: HYPERTENSION
     Route: 048
     Dates: start: 201105

REACTIONS (10)
  - Upper limb fracture [Unknown]
  - Fall [Unknown]
  - Pneumonia [Unknown]
  - Wrist fracture [Unknown]
  - Weight decreased [Unknown]
  - Aphagia [Unknown]
  - Sinus disorder [Unknown]
  - Bronchitis [Unknown]
  - Malaise [Unknown]
  - Blood pressure abnormal [Unknown]
